FAERS Safety Report 13725699 (Version 1)
Quarter: 2017Q3

REPORT INFORMATION
  Report Type: Spontaneous
  Country: US (occurrence: US)
  Receive Date: 20170706
  Receipt Date: 20170706
  Transmission Date: 20171127
  Serious: Yes (Life-Threatening, Hospitalization, Disabling)
  Sender: FDA-Public Use
  Company Number: None

PATIENT
  Age: 41 Year
  Sex: Female
  Weight: 76.5 kg

DRUGS (1)
  1. CLONAZEPAM. [Suspect]
     Active Substance: CLONAZEPAM
     Indication: INSOMNIA
     Dates: start: 20100101, end: 20140908

REACTIONS (64)
  - Tachycardia [None]
  - Arrhythmia [None]
  - Malaise [None]
  - Hallucinations, mixed [None]
  - Blood glucose fluctuation [None]
  - Hunger [None]
  - Alopecia [None]
  - Depression [None]
  - Dysgraphia [None]
  - Palpitations [None]
  - Neuropathy peripheral [None]
  - Fungal infection [None]
  - Parosmia [None]
  - Agoraphobia [None]
  - Food allergy [None]
  - Thyroid disorder [None]
  - Loss of employment [None]
  - Economic problem [None]
  - Drug dependence [None]
  - Drug tolerance [None]
  - Disinhibition [None]
  - Migraine [None]
  - Reading disorder [None]
  - Hyperacusis [None]
  - Gastrointestinal pain [None]
  - Feeling abnormal [None]
  - Asthenia [None]
  - Dizziness [None]
  - Oedema [None]
  - Swelling face [None]
  - Decreased eye contact [None]
  - Abnormal behaviour [None]
  - Abdominal pain upper [None]
  - Hypotension [None]
  - Insomnia [None]
  - Myalgia [None]
  - Drug hypersensitivity [None]
  - Ear pain [None]
  - Cognitive disorder [None]
  - Anterograde amnesia [None]
  - Agitation [None]
  - Aphasia [None]
  - Amnesia [None]
  - Immunosuppression [None]
  - Depersonalisation/derealisation disorder [None]
  - Metabolic disorder [None]
  - Pain in jaw [None]
  - Affect lability [None]
  - Anger [None]
  - Impaired driving ability [None]
  - Tremor [None]
  - Gastric infection [None]
  - Arthralgia [None]
  - Vision blurred [None]
  - Derealisation [None]
  - Disorientation [None]
  - Withdrawal syndrome [None]
  - Irritability [None]
  - Promiscuity [None]
  - Libido increased [None]
  - Suicidal ideation [None]
  - Intrusive thoughts [None]
  - Apathy [None]
  - Photophobia [None]

NARRATIVE: CASE EVENT DATE: 20100101
